FAERS Safety Report 21936397 (Version 2)
Quarter: 2023Q1

REPORT INFORMATION
  Report Type: Spontaneous
  Country: CA (occurrence: CA)
  Receive Date: 20230201
  Receipt Date: 20230317
  Transmission Date: 20230418
  Serious: Yes (Other)
  Sender: FDA-Public Use
  Company Number: CA-PFIZER INC-202201184582

PATIENT
  Age: 20 Year
  Sex: Female

DRUGS (3)
  1. ABRILADA [Suspect]
     Active Substance: ADALIMUMAB-AFZB
     Indication: Crohn^s disease
     Dosage: 1 DF, PREFILLED PEN. WEEK0:160MG, WEEK2:80MG THEN 40 MG EVERY OTHER WEEK
     Route: 058
     Dates: start: 20220916
  2. BUDESONIDE [Concomitant]
     Active Substance: BUDESONIDE
     Dosage: 9 MG, FREQUENCY: UNKNOWN
     Route: 065
     Dates: start: 20220709, end: 2022
  3. BUDESONIDE [Concomitant]
     Active Substance: BUDESONIDE
     Dosage: 3 MG, 1X/DAY FOR 10 DAYS
     Route: 065
     Dates: start: 2022

REACTIONS (10)
  - Gastrointestinal anastomotic stenosis [Unknown]
  - Fatigue [Recovered/Resolved]
  - Eczema [Not Recovered/Not Resolved]
  - Vision blurred [Unknown]
  - Injection site bruising [Recovering/Resolving]
  - Injection site irritation [Unknown]
  - Injection site swelling [Recovering/Resolving]
  - Injection site pruritus [Unknown]
  - Injection site pain [Not Recovered/Not Resolved]
  - Fatigue [Unknown]

NARRATIVE: CASE EVENT DATE: 20220916
